FAERS Safety Report 9490379 (Version 1)
Quarter: 2013Q3

REPORT INFORMATION
  Report Type: Report from Study
  Country: US (occurrence: US)
  Receive Date: 20130830
  Receipt Date: 20130830
  Transmission Date: 20140515
  Serious: Yes (Hospitalization, Other)
  Sender: FDA-Public Use
  Company Number: US-ROCHE-1266705

PATIENT
  Sex: Male

DRUGS (4)
  1. LUCENTIS [Suspect]
     Indication: RETINAL OEDEMA
     Dosage: BOTH EYES, NOT EVERY MONTH
     Route: 065
     Dates: start: 201211
  2. LUCENTIS [Suspect]
     Indication: RETINAL HAEMORRHAGE
  3. METFORMIN [Concomitant]
     Indication: DIABETES MELLITUS
     Route: 065
  4. INSULIN [Concomitant]
     Dosage: UNITS AT BEDTIME
     Route: 065

REACTIONS (4)
  - Epiglottitis [Recovered/Resolved]
  - Productive cough [Recovered/Resolved]
  - Weight decreased [Recovered/Resolved]
  - Oropharyngeal pain [Recovered/Resolved]
